FAERS Safety Report 10994871 (Version 1)
Quarter: 2015Q2

REPORT INFORMATION
  Report Type: Spontaneous
  Country: US (occurrence: US)
  Receive Date: 20150407
  Receipt Date: 20150407
  Transmission Date: 20150821
  Serious: Yes (Other)
  Sender: FDA-Public Use
  Company Number: US-ASTRAZENECA-2015SE31257

PATIENT
  Age: 73 Year
  Sex: Female
  Weight: 86.2 kg

DRUGS (8)
  1. NEXIUM [Suspect]
     Active Substance: ESOMEPRAZOLE MAGNESIUM
     Indication: GASTROOESOPHAGEAL REFLUX DISEASE
     Route: 048
     Dates: start: 2001, end: 201502
  2. OMEPRAZOLE. [Suspect]
     Active Substance: OMEPRAZOLE
     Indication: GASTROOESOPHAGEAL REFLUX DISEASE
     Dosage: NON-AZ PRODUCT, 40 MG, DAILY
     Route: 048
     Dates: start: 201502
  3. FISH OIL [Concomitant]
     Active Substance: FISH OIL
     Indication: BLOOD CHOLESTEROL INCREASED
     Dosage: INTERMITTENT
     Route: 048
  4. FOSAMAX [Concomitant]
     Active Substance: ALENDRONATE SODIUM
     Indication: BONE DENSITY ABNORMAL
     Dosage: ONCE A WEEK
     Route: 048
     Dates: start: 1995
  5. OMEPRAZOLE. [Suspect]
     Active Substance: OMEPRAZOLE
     Indication: DYSPEPSIA
     Dosage: NON-AZ PRODUCT, 40 MG, DAILY
     Route: 048
     Dates: start: 201502
  6. NEXIUM [Suspect]
     Active Substance: ESOMEPRAZOLE MAGNESIUM
     Indication: DYSPEPSIA
     Route: 048
     Dates: start: 2001, end: 201502
  7. COREG [Concomitant]
     Active Substance: CARVEDILOL
     Indication: BUNDLE BRANCH BLOCK LEFT
     Dosage: TWO TIMES A DAY
     Route: 048
     Dates: start: 2012
  8. LISINOPRIL. [Suspect]
     Active Substance: LISINOPRIL
     Dosage: DAILY
     Route: 048
     Dates: start: 2012

REACTIONS (6)
  - Drug ineffective [Unknown]
  - Malaise [Unknown]
  - Dyspepsia [Unknown]
  - Gastrooesophageal reflux disease [Unknown]
  - Bundle branch block left [Unknown]
  - Fatigue [Unknown]

NARRATIVE: CASE EVENT DATE: 2012
